FAERS Safety Report 14720064 (Version 2)
Quarter: 2018Q2

REPORT INFORMATION
  Report Type: Spontaneous
  Country: JP (occurrence: JP)
  Receive Date: 20180405
  Receipt Date: 20180523
  Transmission Date: 20180711
  Serious: Yes (Other)
  Sender: FDA-Public Use
  Company Number: PHJP2018JP007547

PATIENT
  Age: 92 Year
  Sex: Male

DRUGS (1)
  1. TERBINAFINE. [Suspect]
     Active Substance: TERBINAFINE
     Indication: BODY TINEA
     Dosage: 125 MG, QD
     Route: 048

REACTIONS (6)
  - Pustular psoriasis [Recovering/Resolving]
  - Pyrexia [Recovering/Resolving]
  - Pneumonia aspiration [Unknown]
  - Rash pustular [Recovering/Resolving]
  - Skin oedema [Recovering/Resolving]
  - Rash erythematous [Recovering/Resolving]
